FAERS Safety Report 24321366 (Version 2)
Quarter: 2024Q4

REPORT INFORMATION
  Report Type: Spontaneous
  Country: US (occurrence: US)
  Receive Date: 20240916
  Receipt Date: 20241008
  Transmission Date: 20250114
  Serious: Yes (Other)
  Sender: ASTELLAS
  Company Number: US-ASTELLAS-2024-AER-005526

PATIENT
  Age: 88 Year
  Sex: Male

DRUGS (10)
  1. XTANDI [Suspect]
     Active Substance: ENZALUTAMIDE
     Indication: Product used for unknown indication
     Route: 048
     Dates: start: 20240401
  2. XTANDI [Suspect]
     Active Substance: ENZALUTAMIDE
     Route: 048
     Dates: start: 20240501
  3. Calcium 600+D (3) [Concomitant]
     Indication: Product used for unknown indication
     Dosage: 600MG-10MCG (400UNITS)
     Route: 048
     Dates: start: 20240501
  4. CALCIUM CARBONATE [Concomitant]
     Active Substance: CALCIUM CARBONATE
     Indication: Product used for unknown indication
     Route: 048
     Dates: start: 20240501
  5. ELIGARD [Concomitant]
     Active Substance: LEUPROLIDE ACETATE
     Indication: Product used for unknown indication
     Dosage: 6 MONTH
     Route: 058
     Dates: start: 20240124, end: 20240802
  6. ERGOCALCIFEROL [Concomitant]
     Active Substance: ERGOCALCIFEROL
     Indication: Product used for unknown indication
     Dosage: 50,00 UNITS
     Route: 048
     Dates: start: 20240627
  7. FARXIGA [Concomitant]
     Active Substance: DAPAGLIFLOZIN PROPANEDIOL
     Indication: Product used for unknown indication
     Route: 048
     Dates: start: 20240501
  8. PROLIA [Concomitant]
     Active Substance: DENOSUMAB
     Indication: Product used for unknown indication
     Dosage: 60 MG/ML
     Route: 058
     Dates: start: 20240124
  9. SENNA PLUS [Concomitant]
     Active Substance: DOCUSATE SODIUM\SENNOSIDES\SENNOSIDES A AND B
     Indication: Product used for unknown indication
     Dosage: 8.6 MG-50MG AT BEDTIME
     Route: 048
     Dates: start: 20240501
  10. XGEVA [Concomitant]
     Active Substance: DENOSUMAB
     Indication: Product used for unknown indication
     Dosage: RIGHT ARM. PATIENT TOLERATED INJECTION WELL
     Route: 058
     Dates: start: 20240904

REACTIONS (1)
  - Seizure [Unknown]

NARRATIVE: CASE EVENT DATE: 20240903
